FAERS Safety Report 8551752-0 (Version None)
Quarter: 2012Q3

REPORT INFORMATION
  Report Type: 
  Country: None (occurrence: None)
  Receive Date: 20120730
  Receipt Date: 20120727
  Transmission Date: 20120928
  Serious: Yes (Other)
  Sender: FDA-Public Use
  Company Number: US-BAYER-2012-075994

PATIENT
  Sex: Female
  Weight: 61.224 kg

DRUGS (5)
  1. KLONOPIN [Concomitant]
  2. CRESTOR [Concomitant]
  3. PRILOSEC [Concomitant]
  4. ULTRAVIST 150 [Suspect]
     Indication: COMPUTERISED TOMOGRAM ABDOMEN
     Dosage: 100 ML, ONCE
     Route: 042
  5. ANTIDEPRESSANTS [Concomitant]

REACTIONS (2)
  - SNEEZING [None]
  - THROAT TIGHTNESS [None]
